FAERS Safety Report 9998911 (Version 1)
Quarter: 2014Q1

REPORT INFORMATION
  Report Type: Spontaneous
  Country: US (occurrence: None)
  Receive Date: 20140311
  Receipt Date: 20140311
  Transmission Date: 20141002
  Serious: Yes (Hospitalization)
  Sender: FDA-Public Use
  Company Number: None

PATIENT
  Age: 65 Year
  Sex: Male
  Weight: 90.9 kg

DRUGS (1)
  1. OCTAGAM [Suspect]
     Indication: POLYNEUROPATHY IDIOPATHIC PROGRESSIVE
     Route: 042
     Dates: start: 20140218, end: 20140219

REACTIONS (1)
  - Cerebrovascular accident [None]
